FAERS Safety Report 9714341 (Version 1)
Quarter: 2013Q4

REPORT INFORMATION
  Report Type: Spontaneous
  Country: JP (occurrence: JP)
  Receive Date: 20131126
  Receipt Date: 20131126
  Transmission Date: 20140711
  Serious: Yes (Other)
  Sender: FDA-Public Use
  Company Number: JP-PFIZER INC-2013336479

PATIENT
  Age: 8 Decade
  Sex: Male

DRUGS (1)
  1. SELARA [Suspect]
     Dosage: 50 MG, 1X/DAY
     Route: 048

REACTIONS (1)
  - Ascites [Unknown]
